FAERS Safety Report 8539337-3 (Version None)
Quarter: 2012Q3

REPORT INFORMATION
  Report Type: 
  Country: None (occurrence: None)
  Receive Date: 20120726
  Receipt Date: 20110916
  Transmission Date: 20120928
  Serious: No
  Sender: FDA-Public Use
  Company Number: US-ASTRAZENECA-2011SE43405

PATIENT
  Age: 42 Year
  Sex: Male
  Weight: 127 kg

DRUGS (5)
  1. SEROQUEL [Suspect]
     Route: 048
     Dates: start: 20100101, end: 20110101
  2. SEROQUEL [Suspect]
     Route: 048
     Dates: start: 20110101
  3. SEROQUEL [Suspect]
     Indication: BIPOLAR DISORDER
     Route: 048
     Dates: start: 20070101, end: 20100101
  4. SEROQUEL [Suspect]
     Route: 048
     Dates: start: 20050101
  5. LEVOTHYROXINE SODIUM [Concomitant]
     Indication: HYPOTHYROIDISM
     Dates: start: 20100101

REACTIONS (11)
  - SINUSITIS [None]
  - POOR QUALITY SLEEP [None]
  - NASAL CONGESTION [None]
  - DYSPNOEA [None]
  - HEADACHE [None]
  - ADVERSE DRUG REACTION [None]
  - SINUS CONGESTION [None]
  - IRRITABILITY [None]
  - INSOMNIA [None]
  - DRUG INEFFECTIVE [None]
  - SOMNOLENCE [None]
